FAERS Safety Report 10911405 (Version 1)
Quarter: 2015Q1

REPORT INFORMATION
  Report Type: Spontaneous
  Country: GB (occurrence: GB)
  Receive Date: 20150313
  Receipt Date: 20150313
  Transmission Date: 20150721
  Serious: Yes (Death, Other)
  Sender: FDA-Public Use
  Company Number: GB-JNJFOC-20150301359

PATIENT

DRUGS (2)
  1. PARACETAMOL [Suspect]
     Active Substance: ACETAMINOPHEN
     Route: 065
  2. PARACETAMOL [Suspect]
     Active Substance: ACETAMINOPHEN
     Indication: PRODUCT USED FOR UNKNOWN INDICATION
     Route: 065

REACTIONS (8)
  - Acute kidney injury [Unknown]
  - Coronary artery disease [Fatal]
  - Myocardial infarction [Unknown]
  - Hypertension [Unknown]
  - Toxicity to various agents [Unknown]
  - Myocardial ischaemia [Unknown]
  - Cerebrovascular accident [Fatal]
  - Upper gastrointestinal haemorrhage [Unknown]
